FAERS Safety Report 9245958 (Version 1)
Quarter: 2013Q2

REPORT INFORMATION
  Report Type: Report from Study
  Country: IN (occurrence: IN)
  Receive Date: 20130422
  Receipt Date: 20130422
  Transmission Date: 20140414
  Serious: Yes (Death)
  Sender: FDA-Public Use
  Company Number: IN-ROCHE-1216812

PATIENT
  Age: 88 Year
  Sex: Male

DRUGS (2)
  1. RANIBIZUMAB [Suspect]
     Indication: PRODUCT USED FOR UNKNOWN INDICATION
     Route: 050
     Dates: start: 2010
  2. RANIBIZUMAB [Suspect]
     Route: 050
     Dates: start: 201103, end: 201103

REACTIONS (1)
  - Cerebrovascular accident [Fatal]
